FAERS Safety Report 6793971-X (Version None)
Quarter: 2010Q2

REPORT INFORMATION
  Report Type: 
  Country: None (occurrence: None)
  Receive Date: 20100624
  Receipt Date: 20090619
  Transmission Date: 20101027
  Serious: Yes (Other)
  Sender: FDA-Public Use
  Company Number: FR-PFIZER INC-2009230646

PATIENT
  Sex: Female

DRUGS (3)
  1. RELPAX [Suspect]
     Dosage: UNK
     Dates: start: 20080101
  2. MIRENA [Concomitant]
  3. PARIET [Concomitant]

REACTIONS (1)
  - HYPERPROLACTINAEMIA [None]
